FAERS Safety Report 4489193-8 (Version None)
Quarter: 2004Q4

REPORT INFORMATION
  Report Type: 
  Country: None (occurrence: None)
  Receive Date: 20041029
  Receipt Date: 20041019
  Transmission Date: 20050328
  Serious: Yes (Death)
  Sender: FDA-Public Use
  Company Number: CZ-JNJFOC-20041002425

PATIENT
  Sex: Female

DRUGS (5)
  1. RISPERDAL CONSTA [Suspect]
     Indication: DRUG USE FOR UNKNOWN INDICATION
     Dosage: TREATMENT ONGOING AT TIME OF EVENT
     Route: 030
     Dates: start: 20031201, end: 20040723
  2. RISPERDAL [Suspect]
     Indication: DRUG USE FOR UNKNOWN INDICATION
     Dosage: TREATMENT ONGOING AT TIME OF EVENT
  3. ALPRAZOLAM [Suspect]
     Indication: ANXIETY
     Route: 049
  4. ALPRAZOLAM [Suspect]
     Indication: INSOMNIA
     Dosage: 0.5 UP TO 1MG DAILY  THERAPY ONGOING AT TIME OF EVENT
     Route: 049
  5. TISERCIN [Concomitant]
     Dosage: DOSE TAKEN AS NEEDED FOR INSOMNIA

REACTIONS (2)
  - CIRCULATORY COLLAPSE [None]
  - DRUG TOXICITY [None]
